FAERS Safety Report 17708355 (Version 4)
Quarter: 2021Q2

REPORT INFORMATION
  Report Type: Spontaneous
  Country: GB (occurrence: GB)
  Receive Date: 20200426
  Receipt Date: 20210617
  Transmission Date: 20210716
  Serious: Yes (Hospitalization)
  Sender: FDA-Public Use
  Company Number: PHHY2016GB186977

PATIENT
  Age: 50 Year
  Sex: Female

DRUGS (41)
  1. TRASTUZUMAB EMTANSINE [Suspect]
     Active Substance: ADO-TRASTUZUMAB EMTANSINE
     Indication: BREAST CANCER METASTATIC
     Dosage: 320 MG, Q3W
     Route: 042
     Dates: start: 20160921
  2. TRASTUZUMAB EMTANSINE [Suspect]
     Active Substance: ADO-TRASTUZUMAB EMTANSINE
     Dosage: 270 MG
     Route: 042
     Dates: start: 20170510
  3. PERTUZUMAB. [Suspect]
     Active Substance: PERTUZUMAB
     Indication: BREAST CANCER METASTATIC
     Dosage: 840 MG, BIW (LOADING DOSE ON 23 JUN 2016)
     Route: 042
     Dates: start: 20150826
  4. CLOTRIMAZOLE. [Concomitant]
     Active Substance: CLOTRIMAZOLE
     Indication: FUNGAL INFECTION
     Dosage: UNK
     Route: 061
  5. BENDROFLUMETHIAZIDE [Concomitant]
     Active Substance: BENDROFLUMETHIAZIDE
     Indication: PRODUCT USED FOR UNKNOWN INDICATION
     Dosage: UNK
     Route: 048
  6. ASPIRIN. [Concomitant]
     Active Substance: ASPIRIN
     Indication: PAIN
     Dosage: 75 MG
     Route: 048
  7. DOCETAXEL. [Suspect]
     Active Substance: DOCETAXEL
     Dosage: 120 MG, TID
     Route: 042
     Dates: start: 20151002, end: 20151002
  8. TRASTUZUMAB. [Suspect]
     Active Substance: TRASTUZUMAB
     Indication: BREAST CANCER METASTATIC
     Dosage: 1029 MG, Q3W (LOADING DOSE ONLY)
     Route: 042
     Dates: start: 20150827, end: 20150827
  9. TRASTUZUMAB. [Suspect]
     Active Substance: TRASTUZUMAB
     Dosage: 750 MG, Q3W
     Route: 042
     Dates: start: 20160624, end: 20160624
  10. TRASTUZUMAB. [Suspect]
     Active Substance: TRASTUZUMAB
     Dosage: 567 MG, Q3W
     Route: 042
     Dates: start: 20160810, end: 20160831
  11. TRASTUZUMAB EMTANSINE [Suspect]
     Active Substance: ADO-TRASTUZUMAB EMTANSINE
     Dosage: 230 MG, Q3W
     Route: 042
     Dates: start: 20180124, end: 20181205
  12. COCODAMOL [Concomitant]
     Active Substance: ACETAMINOPHEN\CODEINE PHOSPHATE
     Indication: NECK PAIN
     Dosage: UNK
     Route: 048
  13. HYDROXYZINE [Concomitant]
     Active Substance: HYDROXYZINE HYDROCHLORIDE
     Indication: ANXIETY
     Dosage: 25 MG, UNK
     Route: 048
  14. FLUCONAZOLE. [Concomitant]
     Active Substance: FLUCONAZOLE
     Indication: FUNGAL SKIN INFECTION
     Dosage: 50 MG, UNK
     Route: 048
  15. DILTIAZEM. [Concomitant]
     Active Substance: DILTIAZEM
     Indication: BLOOD PRESSURE MEASUREMENT
     Dosage: 60 MG, UNK
     Route: 048
  16. VENTOLIN [Concomitant]
     Active Substance: ALBUTEROL SULFATE
     Indication: PRODUCT USED FOR UNKNOWN INDICATION
     Dosage: UNK
     Route: 048
  17. PERTUZUMAB. [Suspect]
     Active Substance: PERTUZUMAB
     Dosage: 420 MG, TIW
     Route: 042
     Dates: start: 20151002, end: 20160311
  18. OMEPRAZOLE. [Concomitant]
     Active Substance: OMEPRAZOLE
     Indication: PRODUCT USED FOR UNKNOWN INDICATION
     Dosage: 40 MG, QD
     Route: 048
  19. PERTUZUMAB. [Suspect]
     Active Substance: PERTUZUMAB
     Dosage: 420 MG, TIW (NO OF CYCLE PER REGIMEN 3)
     Route: 042
     Dates: start: 20160714, end: 20160831
  20. FUSIDIC ACID [Concomitant]
     Active Substance: FUSIDIC ACID
     Dosage: 1 %
     Route: 061
  21. TRASTUZUMAB. [Suspect]
     Active Substance: TRASTUZUMAB
     Dosage: 630 MG, Q3W
     Route: 042
     Dates: start: 20151202, end: 20160311
  22. ZOLPIDEM [Concomitant]
     Active Substance: ZOLPIDEM TARTRATE
     Indication: PRODUCT USED FOR UNKNOWN INDICATION
     Dosage: 60 MG
     Route: 048
  23. METFORMIN [Concomitant]
     Active Substance: METFORMIN HYDROCHLORIDE
     Indication: DIABETES MELLITUS
     Dosage: 1 G, UNK
     Route: 065
  24. ISOSORBIDE DINITRATE. [Concomitant]
     Active Substance: ISOSORBIDE DINITRATE
     Indication: PRODUCT USED FOR UNKNOWN INDICATION
     Dosage: 20 MG, UNK
     Route: 048
  25. DOCETAXEL. [Suspect]
     Active Substance: DOCETAXEL
     Dosage: 100 MG, TIW
     Route: 042
     Dates: start: 20151223, end: 20160309
  26. TRASTUZUMAB. [Suspect]
     Active Substance: TRASTUZUMAB
     Dosage: 630 MG, Q3W
     Route: 042
     Dates: start: 20160714, end: 20160714
  27. SYMBICORT [Concomitant]
     Active Substance: BUDESONIDE\FORMOTEROL FUMARATE DIHYDRATE
     Indication: PRODUCT USED FOR UNKNOWN INDICATION
     Dosage: UNK
     Route: 048
  28. TRAMADOL. [Concomitant]
     Active Substance: TRAMADOL
     Indication: NECK PAIN
     Dosage: UNK
     Route: 048
  29. ATORVASTATIN [Concomitant]
     Active Substance: ATORVASTATIN
     Indication: BLOOD CHOLESTEROL INCREASED
     Dosage: 10 MG, UNK
     Route: 048
  30. LORATADINE. [Concomitant]
     Active Substance: LORATADINE
     Indication: PRODUCT USED FOR UNKNOWN INDICATION
     Dosage: UNK
     Route: 048
  31. NOVOMIX [Concomitant]
     Active Substance: INSULIN ASPART
     Indication: DIABETES MELLITUS
     Dosage: 2 UNK, QD (46 UNIT)
     Route: 030
  32. TRASTUZUMAB. [Suspect]
     Active Substance: TRASTUZUMAB
     Dosage: 672 MG, Q3W
     Route: 042
     Dates: start: 20151002, end: 20151002
  33. VENLAFAXINE [Concomitant]
     Active Substance: VENLAFAXINE HYDROCHLORIDE
     Indication: DEPRESSION
     Dosage: 150 MG
     Route: 048
  34. FUSIDIC ACID [Concomitant]
     Active Substance: FUSIDIC ACID
     Indication: SKIN BACTERIAL INFECTION
     Dosage: 3 %, QD
     Route: 061
  35. MONTELUKAST [Concomitant]
     Active Substance: MONTELUKAST SODIUM
     Indication: ASTHMA
     Dosage: 10 MG, UNK
     Route: 048
  36. BENZYDAMINE HCL [Concomitant]
     Indication: OROPHARYNGEAL PAIN
     Dosage: 2 DF, QD (2 SPRAY)
     Route: 048
  37. ACETYLSALICYLIC ACID [Concomitant]
     Active Substance: ASPIRIN
     Indication: PAIN
     Dosage: 75 MG
     Route: 048
  38. DOCETAXEL. [Suspect]
     Active Substance: DOCETAXEL
     Indication: BREAST CANCER METASTATIC
     Dosage: 150 MG, TIW
     Route: 042
     Dates: start: 20150827, end: 20150827
  39. GABAPENTIN. [Concomitant]
     Active Substance: GABAPENTIN
     Indication: PRODUCT USED FOR UNKNOWN INDICATION
     Dosage: UNK
     Route: 048
  40. LISINOPRIL. [Concomitant]
     Active Substance: LISINOPRIL
     Indication: BLOOD PRESSURE MEASUREMENT
     Dosage: 20 MG, UNK
     Route: 048
  41. NOVOMIX [Concomitant]
     Active Substance: INSULIN ASPART
     Dosage: 46 UNIT
     Route: 030

REACTIONS (15)
  - Nausea [Recovered/Resolved]
  - Face injury [Recovered/Resolved]
  - Photophobia [Recovering/Resolving]
  - Fall [Recovered/Resolved]
  - Joint injury [Recovered/Resolved]
  - Diabetic foot [Unknown]
  - Dyspnoea [Recovered/Resolved]
  - Fatigue [Recovered/Resolved]
  - Diarrhoea [Not Recovered/Not Resolved]
  - Nausea [Not Recovered/Not Resolved]
  - Nausea [Recovered/Resolved]
  - Fall [Unknown]
  - Breast pain [Recovered/Resolved]
  - Dyspnoea [Recovered/Resolved]
  - Fatigue [Recovered/Resolved]

NARRATIVE: CASE EVENT DATE: 20151220
